FAERS Safety Report 6862651-4 (Version None)
Quarter: 2010Q2

REPORT INFORMATION
  Report Type: 
  Country: None (occurrence: None)
  Receive Date: 20100528
  Receipt Date: 20100422
  Transmission Date: 20101027
  Serious: No
  Sender: FDA-Public Use
  Company Number: 010670

PATIENT

DRUGS (1)
  1. LACOSAMIDE [Suspect]

REACTIONS (1)
  - UNEVALUABLE EVENT [None]
